FAERS Safety Report 13079743 (Version 2)
Quarter: 2017Q1

REPORT INFORMATION
  Report Type: Spontaneous
  Country: US (occurrence: US)
  Receive Date: 20170103
  Receipt Date: 20170117
  Transmission Date: 20170428
  Serious: Yes (Other)
  Sender: FDA-Public Use
  Company Number: US-CONCORDIA PHARMACEUTICALS INC.-GSH201701-000006

PATIENT
  Age: 33 Year
  Sex: Female

DRUGS (6)
  1. DIGOXIN. [Suspect]
     Active Substance: DIGOXIN
     Indication: TACHYCARDIA FOETAL
     Dosage: 1.5 MG INTRAVENOUS(IV) LOAD OVER ?RST 24
     Route: 042
  2. DIGOXIN. [Suspect]
     Active Substance: DIGOXIN
     Route: 048
  3. EPHEDRINE. [Concomitant]
     Active Substance: EPHEDRINE
  4. DIGOXIN. [Suspect]
     Active Substance: DIGOXIN
     Dosage: IN A 24-HOUR PERIOD
     Route: 042
  5. GLYCOPYRROLATE. [Concomitant]
     Active Substance: GLYCOPYRROLATE
  6. DIGOXIN. [Suspect]
     Active Substance: DIGOXIN
     Route: 048

REACTIONS (5)
  - Exposure during pregnancy [Recovered/Resolved]
  - Extrasystoles [Recovered/Resolved]
  - Chest pain [Recovered/Resolved]
  - Toxicity to various agents [Recovered/Resolved]
  - Dyspnoea [Recovered/Resolved]
